FAERS Safety Report 7504192-7 (Version None)
Quarter: 2011Q2

REPORT INFORMATION
  Report Type: 
  Country: None (occurrence: None)
  Receive Date: 20110525
  Receipt Date: 20110512
  Transmission Date: 20111010
  Serious: Yes (Death)
  Sender: FDA-Public Use
  Company Number: US-UCBSA-030670

PATIENT
  Sex: Male
  Weight: 98 kg

DRUGS (8)
  1. DEPAKOTE [Concomitant]
     Dates: start: 20101201, end: 20101207
  2. ADDERALL 10 [Concomitant]
     Indication: ATTENTION DEFICIT/HYPERACTIVITY DISORDER
     Dates: start: 20100101
  3. ACETAMINOPHEN [Concomitant]
     Indication: BACK PAIN
     Dates: start: 19990101
  4. LACOSAMIDE [Suspect]
     Indication: EPILEPSY
     Route: 048
     Dates: start: 20101108
  5. OMEPRAZOLE [Concomitant]
     Indication: DYSPEPSIA
     Dates: start: 20110311
  6. CALCIUM CARBONATE [Concomitant]
     Indication: DYSPEPSIA
     Dates: start: 20101130
  7. DEPAKOTE [Concomitant]
     Dates: start: 20100810, end: 20101130
  8. DEPAKOTE [Concomitant]
     Dates: start: 20101208, end: 20110113

REACTIONS (1)
  - DEATH [None]
